FAERS Safety Report 19128624 (Version 1)
Quarter: 2021Q2

REPORT INFORMATION
  Report Type: Spontaneous
  Country: CN (occurrence: CN)
  Receive Date: 20210413
  Receipt Date: 20210413
  Transmission Date: 20210717
  Serious: Yes (Hospitalization)
  Sender: FDA-Public Use
  Company Number: CN-NOVOPROD-801246

PATIENT
  Age: 62 Year
  Sex: Female
  Weight: 65 kg

DRUGS (5)
  1. NOVOLIN 30R [Suspect]
     Active Substance: INSULIN HUMAN
     Dosage: 100 U/H
     Route: 058
  2. NOVOLIN 30R [Suspect]
     Active Substance: INSULIN HUMAN
     Dosage: 70 U/H
     Route: 058
  3. NOVOLIN 30R [Suspect]
     Active Substance: INSULIN HUMAN
     Dosage: 45 U/H
     Route: 058
  4. NOVOMIX 30 [Suspect]
     Active Substance: INSULIN ASPART
     Indication: TYPE 2 DIABETES MELLITUS
     Dosage: 40 IU, QD (16 U IN THE MORNING, 10 U AT NOON AND 14 U IN THE EVENING)
     Route: 058
  5. NOVOLIN 30R [Suspect]
     Active Substance: INSULIN HUMAN
     Indication: TYPE 2 DIABETES MELLITUS
     Dosage: 14?20 U IN THE MORNING, 10?20 U IN THE EVENING
     Route: 058
     Dates: start: 200504

REACTIONS (6)
  - Rash pruritic [Unknown]
  - Pyrexia [Recovered/Resolved]
  - Insulin resistance [Unknown]
  - Diabetic ketoacidosis [Recovered/Resolved]
  - Insulin autoimmune syndrome [Recovering/Resolving]
  - Hyperglycaemia [Recovered/Resolved]

NARRATIVE: CASE EVENT DATE: 20090525
